FAERS Safety Report 7705335-2 (Version None)
Quarter: 2011Q3

REPORT INFORMATION
  Report Type: 
  Country: None (occurrence: None)
  Receive Date: 20110824
  Receipt Date: 20110815
  Transmission Date: 20111222
  Serious: Yes (Hospitalization)
  Sender: FDA-Public Use
  Company Number: US-JNJFOC-20110808872

PATIENT
  Sex: Male
  Weight: 44.2 kg

DRUGS (2)
  1. METHOTREXATE [Concomitant]
  2. REMICADE [Suspect]
     Indication: INFLAMMATORY BOWEL DISEASE
     Route: 042
     Dates: start: 20090819, end: 20091214

REACTIONS (1)
  - PYREXIA [None]
